FAERS Safety Report 4963106-4 (Version None)
Quarter: 2006Q2

REPORT INFORMATION
  Report Type: 
  Country: None (occurrence: None)
  Receive Date: 20060405
  Receipt Date: 20040518
  Transmission Date: 20061013
  Serious: Yes (Life-Threatening)
  Sender: FDA-Public Use
  Company Number: NL-SANOFI-SYNTHELABO-F01200401

PATIENT
  Age: 54 Year
  Sex: Male

DRUGS (5)
  1. FONDAPARINUX SODIUM [Suspect]
     Route: 058
     Dates: start: 20040416, end: 20040416
  2. ACETYLSALICYLIC ACID SRT [Concomitant]
  3. NITROGLYCERIN [Concomitant]
  4. TIROFIBAN [Concomitant]
  5. VERAPAMIL [Concomitant]

REACTIONS (1)
  - CORONARY ARTERY THROMBOSIS [None]
